FAERS Safety Report 14531695 (Version 1)
Quarter: 2018Q1

REPORT INFORMATION
  Report Type: Report from Study
  Country: DE (occurrence: DE)
  Receive Date: 20180214
  Receipt Date: 20180214
  Transmission Date: 20180509
  Serious: Yes (Hospitalization, Other)
  Sender: FDA-Public Use
  Company Number: DE-BRISTOL-MYERS SQUIBB COMPANY-BMS-2018-007577

PATIENT
  Age: 57 Year
  Sex: Male
  Weight: 68.7 kg

DRUGS (4)
  1. NOVAMINSULFON [Concomitant]
     Active Substance: METAMIZOLE
     Indication: PRODUCT USED FOR UNKNOWN INDICATION
     Dosage: 500 MG, UNK
     Route: 065
     Dates: start: 201712
  2. NIVOLUMAB [Suspect]
     Active Substance: NIVOLUMAB
     Indication: GASTROOESOPHAGEAL CANCER
     Dosage: 68.7 MG, UNK
     Route: 042
     Dates: start: 20180103
  3. LOPERAMID [Concomitant]
     Active Substance: LOPERAMIDE
     Indication: PRODUCT USED FOR UNKNOWN INDICATION
     Dosage: UNK
     Route: 065
     Dates: start: 20180110
  4. IPILIMUMAB [Suspect]
     Active Substance: IPILIMUMAB
     Indication: GASTROOESOPHAGEAL CANCER
     Dosage: 206.1 MG, UNK
     Route: 042
     Dates: start: 20180103

REACTIONS (1)
  - Diverticulitis [Recovered/Resolved]

NARRATIVE: CASE EVENT DATE: 20180126
